FAERS Safety Report 7156930-3 (Version None)
Quarter: 2010Q4

REPORT INFORMATION
  Report Type: 
  Country: None (occurrence: None)
  Receive Date: 20101130
  Receipt Date: 20101028
  Transmission Date: 20110411
  Serious: Yes (Hospitalization)
  Sender: FDA-Public Use
  Company Number: 54973

PATIENT
  Age: 21 Month
  Sex: Male
  Weight: 10.8863 kg

DRUGS (1)
  1. HYLAND'S TEETHING TABLETS [Suspect]
     Indication: TEETHING
     Dosage: 3 TABS FOR 1 WEEK

REACTIONS (10)
  - APHAGIA [None]
  - DECREASED ACTIVITY [None]
  - DRY MOUTH [None]
  - FATIGUE [None]
  - LETHARGY [None]
  - PALLOR [None]
  - POSTURE ABNORMAL [None]
  - PYREXIA [None]
  - VOMITING [None]
  - WHITE BLOOD CELL COUNT INCREASED [None]
